FAERS Safety Report 8273773-8 (Version None)
Quarter: 2012Q2

REPORT INFORMATION
  Report Type: 
  Country: None (occurrence: None)
  Receive Date: 20120411
  Receipt Date: 20120402
  Transmission Date: 20120825
  Serious: Yes (Hospitalization)
  Sender: FDA-Public Use
  Company Number: US-ASTRAZENECA-2011SE47792

PATIENT
  Age: 28094 Day
  Sex: Female

DRUGS (15)
  1. AZD6140 [Suspect]
     Indication: CORONARY ARTERY DISEASE
     Route: 048
     Dates: start: 20110718, end: 20110806
  2. SIMVASTATIN [Concomitant]
     Indication: HYPERLIPIDAEMIA
     Route: 048
  3. AZD6140 [Suspect]
     Route: 048
     Dates: start: 20110808, end: 20110930
  4. AZD6140 [Suspect]
     Route: 048
     Dates: start: 20111004, end: 20111010
  5. CHOLECALCIFEROL [Concomitant]
     Indication: VITAMIN SUPPLEMENTATION
     Route: 048
  6. SERTRALINE HYDROCHLORIDE [Concomitant]
     Indication: DEPRESSION
     Route: 048
     Dates: end: 20111215
  7. TYLENOL (CAPLET) [Concomitant]
     Indication: PAIN
     Dosage: 650 MG FOUR TIMES A DAY, AS REQUIRED
     Route: 048
     Dates: start: 20110201
  8. MULTI-VITAMIN [Concomitant]
     Indication: GENERAL PHYSICAL HEALTH DETERIORATION
     Route: 048
  9. ACETYLSALICYLIC ACID SRT [Concomitant]
     Dates: end: 20120125
  10. SERTRALINE HYDROCHLORIDE [Concomitant]
     Indication: ANXIETY
     Route: 048
     Dates: end: 20111215
  11. METOPROLOL TARTRATE [Concomitant]
     Indication: HYPERTENSION
     Route: 048
  12. FOMOTIDINE [Concomitant]
     Indication: GASTROOESOPHAGEAL REFLUX DISEASE
     Route: 048
     Dates: end: 20111101
  13. METFORMIN HCL [Concomitant]
     Indication: TYPE 2 DIABETES MELLITUS
     Route: 048
  14. KETOROLAC TROMETHAMINE [Concomitant]
     Indication: POSTOPERATIVE ANALGESIA
  15. NITROGLYCERIN [Concomitant]
     Indication: ISCHAEMIC HEART DISEASE PROPHYLAXIS
     Route: 060
     Dates: start: 20110706

REACTIONS (2)
  - NON-CARDIAC CHEST PAIN [None]
  - ACCELERATED HYPERTENSION [None]
